FAERS Safety Report 5426196-0 (Version None)
Quarter: 2007Q3

REPORT INFORMATION
  Report Type: 
  Country: None (occurrence: None)
  Receive Date: 20070827
  Receipt Date: 20070820
  Transmission Date: 20080115
  Serious: Yes (Other)
  Sender: FDA-Public Use
  Company Number: B0390610A

PATIENT
  Sex: Male

DRUGS (25)
  1. ZIAGEN [Suspect]
     Indication: HIV INFECTION
     Dosage: 300MG TWICE PER DAY
     Route: 048
     Dates: start: 20040714
  2. RETROVIR [Suspect]
     Indication: HIV INFECTION
     Dosage: 400MG PER DAY
     Route: 048
     Dates: start: 20040714
  3. VIDEX EC [Suspect]
     Indication: HIV INFECTION
     Dosage: 400MG PER DAY
     Route: 048
     Dates: start: 20040714
  4. AMOXICILLIN TRIHYDRATE [Concomitant]
     Indication: BRONCHITIS
     Dosage: 250MG THREE TIMES PER DAY
     Route: 048
     Dates: start: 20040714, end: 20040721
  5. ALESION [Concomitant]
     Indication: SEASONAL ALLERGY
     Dosage: 20MG PER DAY
     Route: 048
     Dates: start: 20050112, end: 20050331
  6. THEO-DUR [Concomitant]
     Indication: ASTHMA
     Dosage: 200MG PER DAY
     Route: 048
     Dates: start: 20060401, end: 20061003
  7. MEPTIN [Concomitant]
     Indication: ASTHMA
     Route: 055
     Dates: start: 20060401, end: 20061003
  8. MIKELAN [Concomitant]
  9. AMOBAN [Concomitant]
     Indication: INSOMNIA
     Dosage: 15MG PER DAY
     Route: 048
     Dates: start: 20060401, end: 20060905
  10. PROMETHAZINE [Concomitant]
     Indication: PARKINSONISM
     Dosage: 50MG PER DAY
     Dates: start: 20060401
  11. GANATON [Concomitant]
     Indication: NAUSEA
     Route: 048
     Dates: start: 20060401, end: 20060404
  12. POSTERISAN [Concomitant]
     Route: 061
     Dates: start: 20060401, end: 20070326
  13. DOGMATYL [Concomitant]
     Indication: DEPRESSION
     Dosage: 150MG PER DAY
     Dates: start: 20060401
  14. BIPERIDEN HYDROCHLORIDE TAB [Concomitant]
     Indication: DEPRESSION
     Dosage: 4MG PER DAY
     Dates: start: 20060401
  15. WINTERMIN [Concomitant]
     Indication: DEPRESSION
     Dates: start: 20060401
  16. EVAMYL [Concomitant]
     Indication: DEPRESSION
     Dosage: 2MG PER DAY
     Route: 048
     Dates: start: 20060401
  17. UNIPHYL [Concomitant]
     Indication: ASTHMA
     Dosage: 400MG PER DAY
     Route: 048
     Dates: start: 20061004
  18. PULMICORT [Concomitant]
     Indication: ASTHMA
     Dosage: 1200MCG PER DAY
     Route: 055
     Dates: start: 20060906
  19. PAXIL [Concomitant]
     Indication: DEPRESSION
     Route: 048
     Dates: start: 20060705, end: 20061003
  20. DEPAKENE [Concomitant]
     Dosage: 200MG PER DAY
     Route: 048
     Dates: start: 20060906
  21. NITRAZEPAM [Concomitant]
     Indication: INSOMNIA
     Dosage: 10MG PER DAY
     Route: 048
     Dates: start: 20060906
  22. TETRAMIDE [Concomitant]
     Indication: DEPRESSION
     Route: 048
     Dates: start: 20060920
  23. HEMORRHOID OINTMENT [Concomitant]
  24. FLUMARIN [Concomitant]
  25. RELPAX [Concomitant]
     Indication: TENSION HEADACHE
     Route: 048
     Dates: start: 20060401, end: 20060404

REACTIONS (3)
  - GASTRIC ULCER [None]
  - HELICOBACTER INFECTION [None]
  - HEPATIC FUNCTION ABNORMAL [None]
